FAERS Safety Report 6805656-1 (Version None)
Quarter: 2010Q2

REPORT INFORMATION
  Report Type: 
  Country: None (occurrence: None)
  Receive Date: 20100628
  Receipt Date: 20080605
  Transmission Date: 20101027
  Serious: No
  Sender: FDA-Public Use
  Company Number: US-PFIZER INC-2008013167

PATIENT
  Sex: Male
  Weight: 87 kg

DRUGS (1)
  1. GENOTROPIN [Suspect]
     Indication: FIBROMYALGIA

REACTIONS (2)
  - BLOOD GLUCOSE DECREASED [None]
  - BLOOD GLUCOSE INCREASED [None]
